FAERS Safety Report 19039249 (Version 1)
Quarter: 2021Q1

REPORT INFORMATION
  Report Type: Spontaneous
  Country: US (occurrence: US)
  Receive Date: 20210322
  Receipt Date: 20210322
  Transmission Date: 20210420
  Serious: Yes (Hospitalization, Other)
  Sender: FDA-Public Use
  Company Number: US-ACCORD-220250

PATIENT
  Age: 61 Year
  Sex: Male

DRUGS (7)
  1. DEXMEDETOMIDINE/DEXMEDETOMIDINE HYDROCHLORIDE [Suspect]
     Active Substance: DEXMEDETOMIDINE HYDROCHLORIDE
     Indication: DELIRIUM
     Dosage: 0.2 MCG/KG/HR
  2. LISINOPRIL. [Concomitant]
     Active Substance: LISINOPRIL
  3. ACETYLSALICYLIC ACID [Concomitant]
     Active Substance: ASPIRIN
  4. ISOSORBIDE. [Concomitant]
     Active Substance: ISOSORBIDE
  5. SALBUTAMOL [Concomitant]
     Active Substance: ALBUTEROL
  6. AMIODARONE [Concomitant]
     Active Substance: AMIODARONE
  7. METOPROLOL. [Concomitant]
     Active Substance: METOPROLOL

REACTIONS (1)
  - Diabetes insipidus [Recovered/Resolved]
